FAERS Safety Report 24203872 (Version 1)
Quarter: 2024Q3

REPORT INFORMATION
  Report Type: Spontaneous
  Country: JP (occurrence: JP)
  Receive Date: 20240813
  Receipt Date: 20240813
  Transmission Date: 20241017
  Serious: Yes (Hospitalization, Other)
  Sender: NOVAST
  Company Number: JP-NOVAST LABORATORIES INC.-2024NOV000288

PATIENT
  Age: 72 Year
  Sex: Male
  Weight: 60.7 kg

DRUGS (2)
  1. OXALIPLATIN [Suspect]
     Active Substance: OXALIPLATIN
     Indication: Gastric cancer
     Dosage: 5 COURSES
     Route: 065
  2. TS-1 [Concomitant]
     Active Substance: GIMERACIL\OTERACIL POTASSIUM\TEGAFUR
     Indication: Gastric cancer
     Dosage: UNK
     Route: 065

REACTIONS (1)
  - Dropped head syndrome [Recovered/Resolved]
